FAERS Safety Report 7840765-X (Version None)
Quarter: 2011Q4

REPORT INFORMATION
  Report Type: 
  Country: None (occurrence: None)
  Receive Date: 20111021
  Receipt Date: 20111021
  Transmission Date: 20120403
  Serious: No
  Sender: FDA-Public Use
  Company Number: None

PATIENT
  Sex: Male
  Weight: 92 kg

DRUGS (1)
  1. TAXOTERE [Suspect]
     Dosage: 153 MG
     Dates: end: 20110908

REACTIONS (2)
  - URINARY TRACT INFECTION [None]
  - NEUTROPHIL COUNT ABNORMAL [None]
